FAERS Safety Report 4847358-7 (Version None)
Quarter: 2005Q4

REPORT INFORMATION
  Report Type: 
  Country: None (occurrence: None)
  Receive Date: 20051207
  Receipt Date: 20050906
  Transmission Date: 20060501
  Serious: Yes (Hospitalization)
  Sender: FDA-Public Use
  Company Number: US-ROCHE-416621

PATIENT
  Age: 57 Year
  Sex: Female
  Weight: 70.3 kg

DRUGS (13)
  1. PEG-INTERFERON ALFA 2A (RO 25-8310) [Suspect]
     Route: 058
     Dates: start: 20041122, end: 20050829
  2. PEG-INTERFERON ALFA 2A (RO 25-8310) [Suspect]
     Route: 058
     Dates: start: 20050905
  3. RIBAVIRIN [Suspect]
     Route: 048
     Dates: start: 20041122, end: 20050829
  4. RIBAVIRIN [Suspect]
     Route: 048
     Dates: start: 20050901
  5. LEXAPRO [Concomitant]
     Dates: start: 20041206
  6. BENADRYL [Concomitant]
     Dates: start: 20030615
  7. IBUPROFEN [Concomitant]
     Dates: start: 20041129
  8. MOUTHWASH NOS [Concomitant]
     Dosage: REPORTED AS MAGIC MOUTHWASH.
     Dates: start: 20050802
  9. PROTONIX [Concomitant]
     Dates: start: 20050314
  10. OLUX [Concomitant]
     Dates: start: 20050714
  11. TRIAMCINOLONE [Concomitant]
     Dates: start: 20050714
  12. DESONIDE CREAM [Concomitant]
     Dates: start: 20050714
  13. DRAMAMINE [Concomitant]
     Dates: start: 20050104, end: 20050829

REACTIONS (3)
  - DEHYDRATION [None]
  - OTITIS EXTERNA [None]
  - VERTIGO [None]
